FAERS Safety Report 4348249-0 (Version None)
Quarter: 2004Q1

REPORT INFORMATION
  Report Type: 
  Country: None (occurrence: None)
  Receive Date: 20040329
  Receipt Date: 20031125
  Transmission Date: 20041129
  Serious: No
  Sender: FDA-Public Use
  Company Number: USA031153440

PATIENT
  Age: 8 Year
  Sex: Male
  Weight: 35 kg

DRUGS (3)
  1. STRATTERA [Suspect]
     Indication: ASPERGER'S DISORDER
     Dosage: 25 MG/IN THE MORNING
     Dates: start: 20031110
  2. STRATTERA [Suspect]
     Indication: IMPULSIVE BEHAVIOUR
     Dosage: 25 MG/IN THE MORNING
     Dates: start: 20031110
  3. ADDERALL 10 [Concomitant]

REACTIONS (1)
  - TIC [None]
